FAERS Safety Report 25220617 (Version 3)
Quarter: 2025Q2

REPORT INFORMATION
  Report Type: Report from Study
  Country: FR (occurrence: FR)
  Receive Date: 20250421
  Receipt Date: 20250527
  Transmission Date: 20250716
  Serious: Yes (Hospitalization)
  Sender: PFIZER
  Company Number: FR-PFIZER INC-PV202500044136

PATIENT
  Age: 91 Year
  Sex: Female
  Weight: 55 kg

DRUGS (16)
  1. ELRANATAMAB [Suspect]
     Active Substance: ELRANATAMAB
     Indication: Plasma cell myeloma
     Dates: start: 20240130, end: 20240130
  2. ELRANATAMAB [Suspect]
     Active Substance: ELRANATAMAB
     Dates: start: 20240202, end: 20240202
  3. ELRANATAMAB [Suspect]
     Active Substance: ELRANATAMAB
     Dates: start: 20240206, end: 20240206
  4. ELRANATAMAB [Suspect]
     Active Substance: ELRANATAMAB
     Dates: start: 20240213, end: 20240213
  5. ELRANATAMAB [Suspect]
     Active Substance: ELRANATAMAB
     Dates: start: 20240220, end: 20240220
  6. ELRANATAMAB [Suspect]
     Active Substance: ELRANATAMAB
     Dates: start: 20240409, end: 20240409
  7. ELRANATAMAB [Suspect]
     Active Substance: ELRANATAMAB
     Dates: start: 20240521, end: 20240521
  8. LEUCOVORIN CALCIUM [Concomitant]
     Active Substance: LEUCOVORIN CALCIUM
  9. BACTRIM [Concomitant]
     Active Substance: SULFAMETHOXAZOLE\TRIMETHOPRIM
  10. VALACYCLOVIR HYDROCHLORIDE [Concomitant]
     Active Substance: VALACYCLOVIR HYDROCHLORIDE
  11. ALLOPURINOL [Concomitant]
     Active Substance: ALLOPURINOL
  12. LERCANIDIPINE [Concomitant]
     Active Substance: LERCANIDIPINE
  13. NEBIVOLOL [Concomitant]
     Active Substance: NEBIVOLOL
  14. KARDEGIC [Concomitant]
     Active Substance: ASPIRIN DL-LYSINE
  15. LANSOPRAZOLE [Concomitant]
     Active Substance: LANSOPRAZOLE
  16. ACETAMINOPHEN [Concomitant]
     Active Substance: ACETAMINOPHEN

REACTIONS (2)
  - Diarrhoea [Recovered/Resolved]
  - Gastroenteritis Escherichia coli [Recovered/Resolved]

NARRATIVE: CASE EVENT DATE: 20240601
